FAERS Safety Report 13744654 (Version 1)
Quarter: 2017Q3

REPORT INFORMATION
  Report Type: Spontaneous
  Country: US (occurrence: US)
  Receive Date: 20170712
  Receipt Date: 20170712
  Transmission Date: 20171127
  Serious: No
  Sender: FDA-Public Use
  Company Number: US-ASTRAZENECA-2017SE71201

PATIENT
  Sex: Female
  Weight: 122.5 kg

DRUGS (16)
  1. LOSARTAN AND HYDROCHLOROTHIAZIDE [Concomitant]
     Active Substance: HYDROCHLOROTHIAZIDE\LOSARTAN POTASSIUM
     Dosage: STARTED TAKING TWO YEARS AGO, 50 MG-12.5, DAILY
     Route: 048
  2. SINGULAIR [Concomitant]
     Active Substance: MONTELUKAST SODIUM
     Indication: ASTHMA
     Route: 048
  3. OXYGEN. [Concomitant]
     Active Substance: OXYGEN
     Dosage: USES THREE OF OXYGEN AT NIGHT, SEVEN NIGHTS A WEEK
  4. OMEPRAZOLE. [Suspect]
     Active Substance: OMEPRAZOLE
     Indication: ABDOMINAL DISCOMFORT
     Route: 048
  5. SIMVASTATIN. [Concomitant]
     Active Substance: SIMVASTATIN
     Route: 048
  6. SULFAFASALAZIN [Concomitant]
     Indication: COLITIS ULCERATIVE
     Dosage: SIX TABLETS PER DAY, TWO AT BREAKFAST, TWO AT LUNCH AND TWO AT DINNER
     Route: 048
  7. SULFAFASALAZIN [Concomitant]
     Indication: COLITIS ULCERATIVE
     Route: 048
  8. RALOXIFENE. [Concomitant]
     Active Substance: RALOXIFENE
     Indication: BREAST HYPERPLASIA
     Dosage: STARTED 5 YEARS AGO, 60 MG, DAILY
     Route: 048
  9. OMEPRAZOLE. [Suspect]
     Active Substance: OMEPRAZOLE
     Indication: DYSPEPSIA
     Route: 048
  10. ALBUTEROL SULFATE, IPATROPIUM BROMIDE [Concomitant]
     Indication: ASTHMA
     Dosage: DAILY, STARTED TAKING IN THE NEBULIZER, FIVE YEARS AGO
     Route: 055
  11. TUDORZA PRESSAIR [Suspect]
     Active Substance: ACLIDINIUM BROMIDE
     Indication: CHRONIC OBSTRUCTIVE PULMONARY DISEASE
     Dosage: 400 MCG ONE PUFF TWICE A DAY, WHICH SHE STARTED TAKING A YEAR AGO.
     Route: 055
  12. MERCAPTOPURINE. [Concomitant]
     Active Substance: MERCAPTOPURINE
     Indication: COLITIS ULCERATIVE
     Dosage: 50 MG, ONE AND A HALF PILLS PER DAY AND TAKES ONE AT BREAKFAST AND A HALF AT LUNCH
     Route: 048
  13. BREO ELLIPTA [Concomitant]
     Active Substance: FLUTICASONE FUROATE\VILANTEROL TRIFENATATE
     Indication: LUNG DISORDER
     Dosage: STARTED TAKING A YEAR AGO, ONE PUFF DAILY, 100 MCG/25 MCG, DAILY
     Route: 055
  14. TUDORZA PRESSAIR [Suspect]
     Active Substance: ACLIDINIUM BROMIDE
     Indication: ASTHMA
     Dosage: 400 MCG ONE PUFF TWICE A DAY, WHICH SHE STARTED TAKING A YEAR AGO.
     Route: 055
  15. BREO ELLIPTA [Concomitant]
     Active Substance: FLUTICASONE FUROATE\VILANTEROL TRIFENATATE
     Indication: ASTHMA
     Dosage: STARTED TAKING A YEAR AGO, ONE PUFF DAILY, 100 MCG/25 MCG, DAILY
     Route: 055
  16. OMEPRAZOLE. [Suspect]
     Active Substance: OMEPRAZOLE
     Indication: GASTROOESOPHAGEAL REFLUX DISEASE
     Route: 048

REACTIONS (5)
  - Off label use [Unknown]
  - Product quality issue [Unknown]
  - Product use in unapproved indication [Unknown]
  - Intentional product misuse [Unknown]
  - Breast hyperplasia [Unknown]
